FAERS Safety Report 13300235 (Version 1)
Quarter: 2017Q1

REPORT INFORMATION
  Report Type: Spontaneous
  Country: US (occurrence: US)
  Receive Date: 20170307
  Receipt Date: 20170307
  Transmission Date: 20170428
  Serious: No
  Sender: FDA-Public Use
  Company Number: US-009507513-1702USA011080

PATIENT
  Age: 23 Year
  Sex: Female
  Weight: 63.49 kg

DRUGS (1)
  1. NEXPLANON [Suspect]
     Active Substance: ETONOGESTREL
     Indication: CONTRACEPTION
     Dosage: 1 IMPLANT EVERY YEAR, LEFT ARM
     Route: 059
     Dates: start: 20160929, end: 20170223

REACTIONS (2)
  - Gallbladder disorder [Unknown]
  - Liver disorder [Unknown]

NARRATIVE: CASE EVENT DATE: 201611
